FAERS Safety Report 4459081-1 (Version None)
Quarter: 2004Q3

REPORT INFORMATION
  Report Type: 
  Country: None (occurrence: None)
  Receive Date: 20040920
  Receipt Date: 20040920
  Transmission Date: 20050211
  Serious: No
  Sender: FDA-Public Use
  Company Number: None

PATIENT
  Age: 57 Year
  Sex: Male
  Weight: 73 kg

DRUGS (14)
  1. AMIODARONE HCL [Suspect]
     Indication: ATRIAL FIBRILLATION
     Dosage: 400 MG Q8H PO
     Route: 048
     Dates: start: 20040428, end: 20040519
  2. ACETAMINOPHEN [Concomitant]
  3. ACYCLOVIR [Concomitant]
  4. CEFEPIME [Concomitant]
  5. CHLORAMPHENICOL [Concomitant]
  6. EPOGEN [Concomitant]
  7. FLUCONAZOLE [Concomitant]
  8. LANSOPRAZOLE [Concomitant]
  9. METHYLPREDNISONE [Concomitant]
  10. PREDNISOLONE [Concomitant]
  11. RANITIDINE [Concomitant]
  12. TACROLIMUS [Concomitant]
  13. VANCOMYCIN [Concomitant]
  14. BACTRIM [Concomitant]

REACTIONS (3)
  - ATRIOVENTRICULAR BLOCK FIRST DEGREE [None]
  - BUNDLE BRANCH BLOCK RIGHT [None]
  - INFECTION [None]
